FAERS Safety Report 4633474-1 (Version None)
Quarter: 2005Q2

REPORT INFORMATION
  Report Type: 
  Country: None (occurrence: None)
  Receive Date: 20050412
  Receipt Date: 20050329
  Transmission Date: 20051028
  Serious: Yes (Death, Hospitalization)
  Sender: FDA-Public Use
  Company Number: 200510650BWH

PATIENT
  Age: 78 Year
  Sex: Male

DRUGS (1)
  1. TRASYLOL [Suspect]
     Indication: CORONARY ARTERY SURGERY
     Dates: start: 20050325

REACTIONS (4)
  - ARTERIAL THROMBOSIS [None]
  - CARDIAC FAILURE [None]
  - CARDIAC PROCEDURE COMPLICATION [None]
  - THROMBOSIS [None]
